FAERS Safety Report 13904553 (Version 12)
Quarter: 2020Q3

REPORT INFORMATION
  Report Type: Report from Study
  Country: US (occurrence: US)
  Receive Date: 20170825
  Receipt Date: 20200710
  Transmission Date: 20201102
  Serious: Yes (Other)
  Sender: FDA-Public Use
  Company Number: PHHY2017US122224

PATIENT
  Age: 50 Year
  Sex: Female

DRUGS (1)
  1. GILENYA [Suspect]
     Active Substance: FINGOLIMOD HYDROCHLORIDE
     Indication: MULTIPLE SCLEROSIS
     Dosage: UNK, QD
     Route: 048

REACTIONS (24)
  - Ophthalmic herpes zoster [Not Recovered/Not Resolved]
  - Nasopharyngitis [Recovered/Resolved]
  - Lymphocyte count decreased [Unknown]
  - Hypertension [Recovered/Resolved]
  - Headache [Recovered/Resolved]
  - Nasopharyngitis [Recovered/Resolved]
  - Dizziness [Recovered/Resolved]
  - Illness [Recovered/Resolved]
  - Cough [Recovered/Resolved]
  - Constipation [Recovered/Resolved]
  - Fall [Recovered/Resolved]
  - Epistaxis [Recovered/Resolved]
  - Acne [Unknown]
  - Herpes zoster [Not Recovered/Not Resolved]
  - Fall [Recovered/Resolved]
  - Avulsion fracture [Unknown]
  - Dental caries [Recovered/Resolved]
  - Fall [Recovered/Resolved]
  - Hyperhidrosis [Recovered/Resolved]
  - Conjunctivitis [Recovered/Resolved]
  - Dizziness exertional [Not Recovered/Not Resolved]
  - White blood cell count decreased [Unknown]
  - Solar lentigo [Not Recovered/Not Resolved]
  - Paraesthesia [Recovered/Resolved]

NARRATIVE: CASE EVENT DATE: 20170630
